FAERS Safety Report 10077728 (Version 1)
Quarter: 2014Q2

REPORT INFORMATION
  Report Type: Report from Study
  Country: DE (occurrence: DE)
  Receive Date: 20140414
  Receipt Date: 20140414
  Transmission Date: 20141212
  Serious: Yes (Hospitalization)
  Sender: FDA-Public Use
  Company Number: PHHY2014DE044706

PATIENT
  Sex: Male
  Weight: 69 kg

DRUGS (5)
  1. ULTIBRO BREEZHALER [Suspect]
     Indication: CHRONIC OBSTRUCTIVE PULMONARY DISEASE
     Dosage: 1 DF, QD
     Route: 055
     Dates: start: 20140130
  2. BERODUAL N [Concomitant]
     Dosage: UNK
  3. AMITRIPTYLIN BETA [Concomitant]
     Dosage: UNK
  4. NOVAMINSULFON 1 A PHARMA [Concomitant]
     Dosage: UNK
  5. TILIDIN [Concomitant]
     Dosage: UNK

REACTIONS (2)
  - Pain [Recovering/Resolving]
  - Hypertension [Unknown]
